FAERS Safety Report 19698610 (Version 1)
Quarter: 2021Q3

REPORT INFORMATION
  Report Type: Spontaneous
  Country: DE (occurrence: DE)
  Receive Date: 20210813
  Receipt Date: 20210813
  Transmission Date: 20211014
  Serious: No
  Sender: FDA-Public Use
  Company Number: DE-ALKEM LABORATORIES LIMITED-DE-ALKEM-2021-02642

PATIENT
  Sex: Male

DRUGS (18)
  1. AMITRIPTYLINE [Suspect]
     Active Substance: AMITRIPTYLINE
     Indication: HERPES ZOSTER
     Dosage: UNK
     Route: 065
     Dates: start: 20201109
  2. AMITRIPTYLINE [Suspect]
     Active Substance: AMITRIPTYLINE
     Indication: PAIN
     Dosage: 1 DOSAGE FORM, QD
     Route: 065
     Dates: start: 20201127
  3. BRIVUDINE [Concomitant]
     Active Substance: BRIVUDINE
     Indication: HERPES ZOSTER
     Dosage: UNK
     Route: 065
     Dates: start: 20201013
  4. PREGABALIN. [Suspect]
     Active Substance: PREGABALIN
     Indication: PAIN
     Dosage: UNK
     Route: 065
     Dates: start: 20201030
  5. VITAMIN B [Concomitant]
     Active Substance: VITAMIN B
     Indication: PRODUCT USED FOR UNKNOWN INDICATION
     Dosage: UNK
     Route: 065
     Dates: start: 20201120, end: 20210205
  6. PREGABALIN. [Suspect]
     Active Substance: PREGABALIN
     Dosage: 100 MILLIGRAM
     Route: 065
     Dates: start: 20201216
  7. PREGABALIN. [Suspect]
     Active Substance: PREGABALIN
     Dosage: 100 MILLIGRAM
     Route: 065
     Dates: start: 20210111
  8. PREGABALIN. [Suspect]
     Active Substance: PREGABALIN
     Dosage: 200 MILLIGRAM, QD
     Route: 065
     Dates: start: 20210122
  9. PREGABALIN. [Suspect]
     Active Substance: PREGABALIN
     Dosage: 150 MILLIGRAM, QD
     Route: 065
     Dates: start: 20210401
  10. LAUROMACROGOL 400 [Concomitant]
     Active Substance: POLIDOCANOL
     Indication: HERPES ZOSTER
     Dosage: UNK
     Route: 065
     Dates: start: 20201030
  11. LOCACORTEN [Concomitant]
     Active Substance: FLUMETHASONE PIVALATE
     Indication: HERPES ZOSTER
     Dosage: UNK
     Route: 065
     Dates: start: 20201016
  12. PREGABALIN. [Suspect]
     Active Substance: PREGABALIN
     Dosage: UNK
     Route: 065
     Dates: start: 20201104
  13. AMITRIPTYLINE [Suspect]
     Active Substance: AMITRIPTYLINE
     Dosage: 10 MILLIGRAM, QD
     Route: 065
     Dates: start: 20201216
  14. PREGABALIN. [Suspect]
     Active Substance: PREGABALIN
     Indication: HERPES ZOSTER
     Dosage: UNK UNK, QD
     Route: 065
  15. PREGABALIN. [Suspect]
     Active Substance: PREGABALIN
     Dosage: 600 MILLIGRAM, QD
     Route: 065
     Dates: start: 20201127
  16. CYANOCOBALAMIN, FOLIC ACID, PYRIDOXINE [Concomitant]
     Indication: HERPES ZOSTER
     Dosage: UNK
     Route: 065
     Dates: start: 20201118
  17. OCTINIDINE [Concomitant]
     Indication: HERPES ZOSTER
     Dosage: UNK
     Route: 065
     Dates: start: 20201022
  18. EBENOL [Concomitant]
     Indication: HERPES ZOSTER
     Dosage: UNK
     Route: 065
     Dates: start: 20201013

REACTIONS (18)
  - Visual impairment [Unknown]
  - Pain of skin [Recovered/Resolved]
  - Pain [Recovering/Resolving]
  - Fatigue [Unknown]
  - Breast enlargement [Unknown]
  - Therapeutic product effect incomplete [Unknown]
  - Memory impairment [Unknown]
  - Urge incontinence [Unknown]
  - Thirst [Unknown]
  - Constipation [Unknown]
  - Muscle spasms [Unknown]
  - Alopecia [Unknown]
  - Disorientation [Unknown]
  - Paraesthesia [Unknown]
  - Weight increased [Unknown]
  - Dry mouth [Unknown]
  - Ageusia [Unknown]
  - Back pain [Unknown]

NARRATIVE: CASE EVENT DATE: 20201109
